FAERS Safety Report 22306864 (Version 22)
Quarter: 2024Q3

REPORT INFORMATION
  Report Type: Spontaneous
  Country: US (occurrence: US)
  Receive Date: 20230511
  Receipt Date: 20240913
  Transmission Date: 20241017
  Serious: Yes (Hospitalization, Other)
  Sender: RANBAXY
  Company Number: US-SUN PHARMACEUTICAL INDUSTRIES LTD-2023R1-384983

PATIENT
  Sex: Female
  Weight: 63.946 kg

DRUGS (25)
  1. EPOPROSTENOL [Suspect]
     Active Substance: EPOPROSTENOL
     Indication: Pulmonary arterial hypertension
     Dosage: 58NG/KG/MIN
     Route: 042
     Dates: start: 20230331
  2. EPOPROSTENOL [Suspect]
     Active Substance: EPOPROSTENOL
     Dosage: 59 NG/KG/MIN CONTINUOUS
     Route: 042
     Dates: start: 20230331
  3. EPOPROSTENOL [Suspect]
     Active Substance: EPOPROSTENOL
     Dosage: 60 NG/KG/MIN CONTINUOUS
     Route: 042
     Dates: start: 20230331
  4. EPOPROSTENOL [Suspect]
     Active Substance: EPOPROSTENOL
     Dosage: 60 NG/KG/MIN CONTINUOUS
     Route: 042
     Dates: start: 20230331
  5. EPOPROSTENOL [Suspect]
     Active Substance: EPOPROSTENOL
     Dosage: 61.2 NG/KG/MIN CONTINUOUS
     Route: 042
     Dates: start: 20230331
  6. EPOPROSTENOL [Suspect]
     Active Substance: EPOPROSTENOL
     Dosage: 60.2 NG/KG/MIN CONTINUOUS
     Route: 042
     Dates: start: 20230331
  7. EPOPROSTENOL [Suspect]
     Active Substance: EPOPROSTENOL
     Dosage: 61 NG/KG/MIN CONTINUOUS
     Route: 042
     Dates: start: 20230331
  8. EPOPROSTENOL [Suspect]
     Active Substance: EPOPROSTENOL
     Dosage: 61 NG/KG/MIN CONTINUOUS
     Route: 042
     Dates: start: 20230331
  9. EPOPROSTENOL [Suspect]
     Active Substance: EPOPROSTENOL
     Dosage: 61 NG/KG/MIN CONTINUOUS
     Route: 042
     Dates: start: 20230331
  10. EPOPROSTENOL [Suspect]
     Active Substance: EPOPROSTENOL
     Dosage: 61 NG/KG/MIN, CONTINUOUS
     Route: 042
     Dates: start: 20230331
  11. EPOPROSTENOL [Suspect]
     Active Substance: EPOPROSTENOL
     Dosage: 61 NG/KG/MIN, CONTINUOUS
     Route: 042
     Dates: start: 20230331
  12. EPOPROSTENOL [Suspect]
     Active Substance: EPOPROSTENOL
     Dosage: 61 NG/KG/MIN, CONTINUOUS
     Route: 042
     Dates: start: 20230331
  13. ELIQUIS [Concomitant]
     Active Substance: APIXABAN
     Indication: Product used for unknown indication
     Dosage: UNK
     Route: 065
  14. VELETRI [Concomitant]
     Active Substance: EPOPROSTENOL
     Indication: Product used for unknown indication
     Dosage: UNK
     Route: 065
  15. SILDENAFIL CITRATE [Concomitant]
     Active Substance: SILDENAFIL CITRATE
     Indication: Product used for unknown indication
     Dosage: UNK
     Route: 065
  16. OMEPRAZOLE [Concomitant]
     Active Substance: OMEPRAZOLE
     Indication: Product used for unknown indication
     Dosage: UNK
     Route: 065
  17. IBUPROFEN [Concomitant]
     Active Substance: IBUPROFEN
     Indication: Product used for unknown indication
     Dosage: UNK
     Route: 065
  18. TYLENOL [Concomitant]
     Active Substance: ACETAMINOPHEN
     Indication: Product used for unknown indication
     Dosage: UNK
     Route: 065
  19. KETOCONAZOLE [Concomitant]
     Active Substance: KETOCONAZOLE
     Indication: Product used for unknown indication
     Dosage: UNK
     Route: 065
  20. LASIX [Concomitant]
     Active Substance: FUROSEMIDE
     Indication: Product used for unknown indication
     Dosage: UNK
     Route: 065
  21. ALBUTEROL SULFATE [Concomitant]
     Active Substance: ALBUTEROL SULFATE
     Indication: Product used for unknown indication
     Dosage: UNK
     Route: 065
  22. SILDENAFIL CITRATE [Concomitant]
     Active Substance: SILDENAFIL CITRATE
     Indication: Product used for unknown indication
     Dosage: UNK
     Route: 065
  23. GABAPENTIN [Concomitant]
     Active Substance: GABAPENTIN
     Indication: Product used for unknown indication
     Dosage: UNK
     Route: 065
  24. DIAZEPAM [Concomitant]
     Active Substance: DIAZEPAM
     Indication: Product used for unknown indication
     Dosage: UNK
     Route: 065
  25. SPIRONOLACTONE [Concomitant]
     Active Substance: SPIRONOLACTONE
     Indication: Product used for unknown indication
     Dosage: UNK
     Route: 065

REACTIONS (22)
  - Dyspnoea [Unknown]
  - Heart rate increased [Unknown]
  - Fatigue [Unknown]
  - Brain natriuretic peptide increased [Unknown]
  - Bacterial infection [Unknown]
  - Clostridium difficile infection [Unknown]
  - Nausea [Unknown]
  - Diverticulitis [Unknown]
  - Arthralgia [Unknown]
  - Rash [Recovered/Resolved]
  - Pruritus [Unknown]
  - Wound drainage [Unknown]
  - Hypersensitivity [Unknown]
  - Viral infection [Unknown]
  - Feeling abnormal [Unknown]
  - Gastrointestinal disorder [Unknown]
  - Diarrhoea [Unknown]
  - Scab [Unknown]
  - Injection site erythema [Not Recovered/Not Resolved]
  - Complication associated with device [Unknown]
  - Tooth infection [Unknown]
  - Mouth swelling [Unknown]
